FAERS Safety Report 20145509 (Version 1)
Quarter: 2021Q4

REPORT INFORMATION
  Report Type: Spontaneous
  Country: US (occurrence: US)
  Receive Date: 20211203
  Receipt Date: 20211203
  Transmission Date: 20220304
  Serious: No
  Sender: FDA-Public Use
  Company Number: ENDG20-09119

PATIENT
  Sex: Female
  Weight: 90.26 kg

DRUGS (3)
  1. ALPRAZOLAM ER [Suspect]
     Active Substance: ALPRAZOLAM
     Indication: Anxiety disorder
     Dosage: 0.25 MG, 5 TIMES A DAY
     Route: 048
  2. ALPRAZOLAM ER [Suspect]
     Active Substance: ALPRAZOLAM
     Indication: Panic attack
  3. ESCITALOPRAM [Concomitant]
     Active Substance: ESCITALOPRAM OXALATE
     Indication: Product used for unknown indication
     Dosage: UNK

REACTIONS (4)
  - Panic attack [Unknown]
  - Product dose omission issue [Unknown]
  - Product dispensing error [Unknown]
  - Anxiety [Unknown]
